FAERS Safety Report 7693760-8 (Version None)
Quarter: 2011Q3

REPORT INFORMATION
  Report Type: 
  Country: None (occurrence: None)
  Receive Date: 20110819
  Receipt Date: 20110812
  Transmission Date: 20111222
  Serious: Yes (Death, Life-Threatening)
  Sender: FDA-Public Use
  Company Number: DE-ROCHE-797076

PATIENT
  Age: 74 Year
  Sex: Female

DRUGS (3)
  1. LEVOTHYROXINE SODIUM [Concomitant]
     Dosage: 0.1 MG PER DAY
     Route: 048
     Dates: end: 20040115
  2. FUROSEMIDE [Concomitant]
     Dosage: 40 MG PER DAY.
     Route: 048
     Dates: end: 20040115
  3. DIAZEPAM [Suspect]
     Indication: NEUROLEPTIC MALIGNANT SYNDROME
     Dosage: 15 MG PER DAY
     Route: 048
     Dates: start: 20030101, end: 20040115

REACTIONS (1)
  - DEATH [None]
